FAERS Safety Report 11272214 (Version 1)
Quarter: 2015Q3

REPORT INFORMATION
  Report Type: Spontaneous
  Country: US (occurrence: None)
  Receive Date: 20150713
  Receipt Date: 20150713
  Transmission Date: 20151125
  Serious: Yes (Other)
  Sender: FDA-Public Use
  Company Number: None

PATIENT
  Age: 56 Year
  Sex: Male

DRUGS (1)
  1. ENBREL [Suspect]
     Active Substance: ETANERCEPT
     Dosage: 50MG  QW  SUB-Q
     Route: 058
     Dates: start: 20150512, end: 20150601

REACTIONS (2)
  - Local swelling [None]
  - Dysphagia [None]

NARRATIVE: CASE EVENT DATE: 20150601
